FAERS Safety Report 26017769 (Version 3)
Quarter: 2025Q4

REPORT INFORMATION
  Report Type: Report from Study
  Country: CN (occurrence: CN)
  Receive Date: 20251110
  Receipt Date: 20251203
  Transmission Date: 20260117
  Serious: Yes (Other)
  Sender: ROCHE
  Company Number: CN-ROCHE-10000026163

PATIENT
  Age: 53 Year
  Sex: Female
  Weight: 53.5 kg

DRUGS (13)
  1. KADCYLA [Suspect]
     Active Substance: ADO-TRASTUZUMAB EMTANSINE
     Indication: Breast cancer
     Dosage: DATE AND DOSE OF MOST RECENT DOSE OF MEDICINAL PRODUCT PRIOR TO AE ONSET: 20/JUN/2024 AND 180 MG?LAS
     Route: 042
     Dates: start: 20240529
  2. DEXAMETHASONE SODIUM PHOSPHATE [Concomitant]
     Active Substance: DEXAMETHASONE SODIUM PHOSPHATE
     Indication: Prophylaxis
     Route: 042
     Dates: start: 20240529, end: 20240529
  3. DEXAMETHASONE SODIUM PHOSPHATE [Concomitant]
     Active Substance: DEXAMETHASONE SODIUM PHOSPHATE
     Route: 042
     Dates: start: 20240620, end: 20240620
  4. DEXAMETHASONE SODIUM PHOSPHATE [Concomitant]
     Active Substance: DEXAMETHASONE SODIUM PHOSPHATE
     Dosage: FREQUENCY: OTHER
     Route: 042
     Dates: start: 20240712, end: 20240712
  5. FUROSEMIDE [Concomitant]
     Active Substance: FUROSEMIDE
     Indication: Prophylaxis
     Dosage: 29 MAY 2024
     Route: 048
     Dates: start: 20240530
  6. FUROSEMIDE [Concomitant]
     Active Substance: FUROSEMIDE
     Route: 042
     Dates: start: 20240529, end: 20240529
  7. ONDANSETRON HYDROCHLORIDE [Concomitant]
     Active Substance: ONDANSETRON HYDROCHLORIDE
     Dosage: 29 MAY 2024
     Route: 042
     Dates: start: 20240620, end: 20240622
  8. ONDANSETRON HYDROCHLORIDE [Concomitant]
     Active Substance: ONDANSETRON HYDROCHLORIDE
     Dosage: 29 MAY 2024
     Route: 042
     Dates: start: 20240529, end: 20240529
  9. LIDOCAINE HYDROCHLORIDE [Concomitant]
     Active Substance: LIDOCAINE HYDROCHLORIDE
     Dates: start: 20240620, end: 20240620
  10. MANNITOL [Concomitant]
     Active Substance: MANNITOL
     Route: 042
     Dates: start: 20240620, end: 20240620
  11. MANNITOL [Concomitant]
     Active Substance: MANNITOL
     Route: 042
     Dates: start: 20240712, end: 20240712
  12. FULVESTRANT [Concomitant]
     Active Substance: FULVESTRANT
     Dosage: FREQUENCY: OTHER
     Route: 030
     Dates: start: 20240529, end: 20240529
  13. SPIRONOLACTONE [Concomitant]
     Active Substance: SPIRONOLACTONE
     Dosage: FREQUENCY: OTHER
     Route: 048
     Dates: start: 20240530, end: 20240530

REACTIONS (8)
  - Platelet count decreased [Not Recovered/Not Resolved]
  - Blood urea increased [Recovered/Resolved]
  - Blood creatinine increased [Recovered/Resolved]
  - Hypokalaemia [Recovered/Resolved]
  - Pericardial effusion [Recovered/Resolved]
  - Weight decreased [Not Recovered/Not Resolved]
  - White blood cell count decreased [Not Recovered/Not Resolved]
  - Hyperuricaemia [Recovered/Resolved]

NARRATIVE: CASE EVENT DATE: 20240620
